FAERS Safety Report 13369159 (Version 1)
Quarter: 2017Q1

REPORT INFORMATION
  Report Type: Spontaneous
  Country: JP (occurrence: JP)
  Receive Date: 20170324
  Receipt Date: 20170324
  Transmission Date: 20170429
  Serious: Yes (Death)
  Sender: FDA-Public Use
  Company Number: JP-ROCHE-1911307

PATIENT
  Sex: Female

DRUGS (2)
  1. PACLITAXEL. [Suspect]
     Active Substance: PACLITAXEL
     Indication: BREAST CANCER
     Dosage: DOSAGE IS UNCERTAIN.
     Route: 041
  2. AVASTIN [Suspect]
     Active Substance: BEVACIZUMAB
     Indication: BREAST CANCER
     Dosage: DOSAGE IS UNCERTAIN.?TREATMENT CYCLE OF THIS MEDICINE NUMBER: 3 OR MORE
     Route: 041

REACTIONS (3)
  - Epistaxis [Recovered/Resolved]
  - Neuropathy peripheral [Not Recovered/Not Resolved]
  - Breast cancer [Fatal]
